FAERS Safety Report 6882128-X (Version None)
Quarter: 2010Q3

REPORT INFORMATION
  Report Type: 
  Country: None (occurrence: None)
  Receive Date: 20100729
  Receipt Date: 20100716
  Transmission Date: 20110219
  Serious: Yes (Other)
  Sender: FDA-Public Use
  Company Number: FR-ELI_LILLY_AND_COMPANY-FR201007003948

PATIENT
  Age: 67 Year
  Sex: Female

DRUGS (3)
  1. HUMATROPE [Suspect]
     Indication: POSTPARTUM HYPOPITUITARISM
     Dosage: 6 MG, UNKNOWN
     Route: 058
     Dates: start: 20000101
  2. HYDROCORTISON [Concomitant]
     Dosage: UNK, UNKNOWN
     Route: 065
  3. THYROID PREPARATIONS [Concomitant]
     Dosage: UNK, UNKNOWN
     Route: 065

REACTIONS (5)
  - ATROPHY [None]
  - DIABETES MELLITUS [None]
  - INCORRECT DOSE ADMINISTERED [None]
  - PARALYSIS [None]
  - URINARY BLADDER ATROPHY [None]
